FAERS Safety Report 25621871 (Version 3)
Quarter: 2025Q3

REPORT INFORMATION
  Report Type: Spontaneous
  Country: EU (occurrence: EU)
  Receive Date: 20250730
  Receipt Date: 20250820
  Transmission Date: 20251020
  Serious: Yes (Hospitalization)
  Sender: ANI
  Company Number: EU-ANIPHARMA-2025-DE-000051

PATIENT
  Sex: Male

DRUGS (11)
  1. CANDESARTAN CILEXETIL [Suspect]
     Active Substance: CANDESARTAN CILEXETIL
     Indication: Product used for unknown indication
  2. DEVICE [Suspect]
     Active Substance: DEVICE
  3. CRESTOR [Suspect]
     Active Substance: ROSUVASTATIN CALCIUM
  4. BUDESONIDE\FORMOTEROL [Suspect]
     Active Substance: BUDESONIDE\FORMOTEROL
  5. CLOPIDOGREL [Suspect]
     Active Substance: CLOPIDOGREL BISULFATE
  6. ESOMEPRAZOLE [Suspect]
     Active Substance: ESOMEPRAZOLE
  7. EZETIMIBE [Suspect]
     Active Substance: EZETIMIBE
  8. NEBIVOLOL [Suspect]
     Active Substance: NEBIVOLOL
  9. ROSUVASTATIN [Suspect]
     Active Substance: ROSUVASTATIN
  10. INDAPAMIDE [Suspect]
     Active Substance: INDAPAMIDE
  11. COSENTYX [Suspect]
     Active Substance: SECUKINUMAB
     Dates: start: 20210706

REACTIONS (1)
  - Spinal osteoarthritis [Recovered/Resolved]

NARRATIVE: CASE EVENT DATE: 20250211
